FAERS Safety Report 7427912-9 (Version None)
Quarter: 2011Q2

REPORT INFORMATION
  Report Type: 
  Country: None (occurrence: None)
  Receive Date: 20110418
  Receipt Date: 20110418
  Transmission Date: 20111010
  Serious: Yes (Death, Life-Threatening, Hospitalization, Disabling, Congenital Anomaly, Other)
  Sender: FDA-Public Use
  Company Number: None

PATIENT
  Age: 38 Year
  Sex: Female
  Weight: 83.9154 kg

DRUGS (2)
  1. CYMBALTA [Suspect]
     Indication: DEPRESSION
     Dosage: 120 MG ONCE DAILY PO
     Route: 048
     Dates: start: 20081101, end: 20101001
  2. CYMBALTA [Suspect]
     Indication: FIBROMYALGIA
     Dosage: 120 MG ONCE DAILY PO
     Route: 048
     Dates: start: 20081101, end: 20101001

REACTIONS (13)
  - WEIGHT INCREASED [None]
  - OVERDOSE [None]
  - FATIGUE [None]
  - INSOMNIA [None]
  - NAUSEA [None]
  - HYPERHIDROSIS [None]
  - HOMICIDAL IDEATION [None]
  - SUICIDE ATTEMPT [None]
  - ABNORMAL DREAMS [None]
  - INFLUENZA LIKE ILLNESS [None]
  - PERSONALITY CHANGE [None]
  - DRUG WITHDRAWAL SYNDROME [None]
  - SUICIDAL IDEATION [None]
